FAERS Safety Report 12333248 (Version 1)
Quarter: 2016Q2

REPORT INFORMATION
  Report Type: Spontaneous
  Country: US (occurrence: US)
  Receive Date: 20160504
  Receipt Date: 20160504
  Transmission Date: 20160815
  Serious: No
  Sender: FDA-Public Use
  Company Number: US-ROCHE-1636521

PATIENT
  Sex: Male

DRUGS (4)
  1. ATORVASTATIN [Concomitant]
     Active Substance: ATORVASTATIN
  2. ESBRIET [Suspect]
     Active Substance: PIRFENIDONE
     Indication: IDIOPATHIC PULMONARY FIBROSIS
     Route: 048
     Dates: start: 20150121
  3. BABY ASPIRIN [Concomitant]
     Active Substance: ASPIRIN
  4. DELZICOL [Concomitant]
     Active Substance: MESALAMINE

REACTIONS (1)
  - Fatigue [Unknown]
